FAERS Safety Report 6270505-X (Version None)
Quarter: 2009Q3

REPORT INFORMATION
  Report Type: 
  Country: None (occurrence: None)
  Receive Date: 20090716
  Receipt Date: 20090709
  Transmission Date: 20100115
  Serious: Yes (Other)
  Sender: FDA-Public Use
  Company Number: US-ASTRAZENECA-2007UW09595

PATIENT
  Age: 12635 Day
  Sex: Female
  Weight: 95.3 kg

DRUGS (2)
  1. SEROQUEL [Suspect]
     Indication: DEPRESSION
     Route: 048
     Dates: start: 20031212, end: 20050101
  2. TOPAMAX [Concomitant]
     Dates: start: 20040101, end: 20050101

REACTIONS (4)
  - CONVULSION [None]
  - LIMB INJURY [None]
  - NEUROPATHY PERIPHERAL [None]
  - TYPE 2 DIABETES MELLITUS [None]
